FAERS Safety Report 10266837 (Version 1)
Quarter: 2014Q2

REPORT INFORMATION
  Report Type: Spontaneous
  Country: US (occurrence: US)
  Receive Date: 20140630
  Receipt Date: 20140630
  Transmission Date: 20141212
  Serious: No
  Sender: FDA-Public Use
  Company Number: US-B.I. PHARMACEUTICALS,INC./RIDGEFIELD-2014-BI-28379BP

PATIENT
  Sex: Male

DRUGS (2)
  1. TWYNSTA [Suspect]
     Indication: HYPERTENSION
     Dosage: STRENGTH AND DAILY DOSE: 40MG / 5MG
     Route: 048
     Dates: start: 201110
  2. ADVIL [Concomitant]
     Indication: GOUT
     Route: 048
     Dates: start: 2011

REACTIONS (1)
  - Hypertension [Recovered/Resolved]
